FAERS Safety Report 7495786-6 (Version None)
Quarter: 2011Q2

REPORT INFORMATION
  Report Type: 
  Country: None (occurrence: None)
  Receive Date: 20110523
  Receipt Date: 20110511
  Transmission Date: 20111010
  Serious: Yes (Other)
  Sender: FDA-Public Use
  Company Number: CA-ELI_LILLY_AND_COMPANY-CA201105003003

PATIENT
  Sex: Female

DRUGS (13)
  1. ZYPREXA [Suspect]
     Dosage: 12.5 MG, QD
  2. CELEXA [Concomitant]
  3. MIRTAZAPINE [Concomitant]
  4. PRILOSEC [Concomitant]
  5. PREVACID [Concomitant]
  6. RABEPRAZOLE SODIUM [Concomitant]
  7. ZOPICLONE [Concomitant]
  8. BENZTROPINE MESYLATE [Concomitant]
  9. ZYPREXA [Suspect]
     Indication: SCHIZOAFFECTIVE DISORDER
     Dosage: 15 MG, QD
  10. HALDOL [Concomitant]
  11. PERPHENAZINE [Concomitant]
  12. PROCYCLIDINE HYDROCHLORIDE 2MG TAB [Concomitant]
  13. NEXIUM [Concomitant]

REACTIONS (8)
  - MYOCARDIAL INFARCTION [None]
  - HYPERTENSION [None]
  - DIABETES MELLITUS [None]
  - DYSLIPIDAEMIA [None]
  - OPEN ANGLE GLAUCOMA [None]
  - GASTROINTESTINAL HAEMORRHAGE [None]
  - JOINT SWELLING [None]
  - WEIGHT INCREASED [None]
